FAERS Safety Report 5125204-4 (Version None)
Quarter: 2006Q4

REPORT INFORMATION
  Report Type: 
  Country: None (occurrence: None)
  Receive Date: 20061010
  Receipt Date: 20061010
  Transmission Date: 20070319
  Serious: Yes (Hospitalization)
  Sender: FDA-Public Use
  Company Number: None

PATIENT
  Age: 55 Year
  Sex: Male
  Weight: 72.5755 kg

DRUGS (9)
  1. BETASERON [Suspect]
     Indication: MULTIPLE SCLEROSIS
     Dosage: 0.25 MG SC QOD
     Route: 058
  2. ZANAFLEX [Concomitant]
  3. BACLOFEN [Concomitant]
  4. PRILOSEC OTC [Concomitant]
  5. DANTRIM [Concomitant]
  6. PROZAC [Concomitant]
  7. DOXOZOSIN [Concomitant]
  8. COLACE [Concomitant]
  9. ASPIRIN [Concomitant]

REACTIONS (5)
  - INJECTION SITE ERYTHEMA [None]
  - INJECTION SITE INDURATION [None]
  - INJECTION SITE PAIN [None]
  - INJECTION SITE SWELLING [None]
  - THERAPY NON-RESPONDER [None]
